FAERS Safety Report 6279923-7 (Version None)
Quarter: 2009Q3

REPORT INFORMATION
  Report Type: 
  Country: None (occurrence: None)
  Receive Date: 20090723
  Receipt Date: 20090511
  Transmission Date: 20100115
  Serious: No
  Sender: FDA-Public Use
  Company Number: US-AMGEN-KDL346772

PATIENT
  Sex: Female
  Weight: 94.4 kg

DRUGS (6)
  1. PROCRIT [Suspect]
     Indication: RENAL FAILURE CHRONIC
     Route: 058
  2. LANTUS [Concomitant]
     Route: 058
  3. BENICAR [Concomitant]
  4. VERAPAMIL [Concomitant]
     Route: 048
  5. FUROSEMIDE [Concomitant]
  6. HUMALOG [Concomitant]

REACTIONS (3)
  - ASTHENIA [None]
  - DYSGEUSIA [None]
  - THERAPEUTIC RESPONSE DECREASED [None]
